FAERS Safety Report 4448796-7 (Version None)
Quarter: 2004Q3

REPORT INFORMATION
  Report Type: 
  Country: None (occurrence: None)
  Receive Date: 20040909
  Receipt Date: 20040824
  Transmission Date: 20050211
  Serious: Yes (Hospitalization)
  Sender: FDA-Public Use
  Company Number: 177398

PATIENT
  Age: 40 Year
  Sex: Female
  Weight: 73.4827 kg

DRUGS (3)
  1. AVONEX [Suspect]
     Indication: MULTIPLE SCLEROSIS
     Dosage: 30 MCG QW IM
     Route: 030
     Dates: start: 20020101
  2. RISPERDAL [Concomitant]
  3. BENADRYL ^WARNER LAMBERT^ [Concomitant]

REACTIONS (7)
  - BIPOLAR I DISORDER [None]
  - CONTUSION [None]
  - FALL [None]
  - INSOMNIA [None]
  - MULTIPLE SCLEROSIS [None]
  - PYREXIA [None]
  - URTICARIA [None]
